FAERS Safety Report 15984551 (Version 1)
Quarter: 2019Q1

REPORT INFORMATION
  Report Type: Spontaneous
  Country: US (occurrence: US)
  Receive Date: 20190220
  Receipt Date: 20190220
  Transmission Date: 20190418
  Serious: Yes (Hospitalization)
  Sender: FDA-Public Use
  Company Number: US-PTC THERAPEUTICS, INC.-US-2019PTC000260

PATIENT

DRUGS (1)
  1. EMFLAZA [Suspect]
     Active Substance: DEFLAZACORT
     Indication: MUSCULAR DYSTROPHY
     Dosage: 15 MG, UNK
     Route: 048
     Dates: start: 20171117

REACTIONS (4)
  - Dehydration [Unknown]
  - Product dose omission [Unknown]
  - Clostridium difficile infection [Unknown]
  - Influenza [Unknown]

NARRATIVE: CASE EVENT DATE: 201901
